FAERS Safety Report 9503663 (Version 1)
Quarter: 2013Q3

REPORT INFORMATION
  Report Type: Spontaneous
  Country: AU (occurrence: AU)
  Receive Date: 20130906
  Receipt Date: 20130906
  Transmission Date: 20140515
  Serious: Yes (Death, Congenital Anomaly)
  Sender: FDA-Public Use
  Company Number: PHHY2013AU098056

PATIENT
  Sex: 0

DRUGS (2)
  1. METHADONE [Suspect]
     Route: 064
  2. CANNABIS [Suspect]
     Route: 064

REACTIONS (3)
  - Death [Fatal]
  - Ventricular septal defect [Unknown]
  - Foetal exposure during pregnancy [Unknown]
